FAERS Safety Report 9725493 (Version 2)
Quarter: 2013Q4

REPORT INFORMATION
  Report Type: Spontaneous
  Country: US (occurrence: None)
  Receive Date: 20131127
  Receipt Date: 20131204
  Transmission Date: 20140711
  Serious: Yes (Other)
  Sender: FDA-Public Use
  Company Number: ADR-2013-02155

PATIENT
  Sex: Female

DRUGS (1)
  1. BACLOFEN [Suspect]
     Indication: MUSCLE SPASTICITY

REACTIONS (15)
  - Device deployment issue [None]
  - Catheter site pain [None]
  - Neuralgia [None]
  - Pain [None]
  - Pain in extremity [None]
  - Bedridden [None]
  - Burning sensation [None]
  - Areflexia [None]
  - Areflexia [None]
  - Hypoaesthesia [None]
  - Peripheral coldness [None]
  - Fall [None]
  - Device dislocation [None]
  - Neuralgia [None]
  - Treatment failure [None]
